FAERS Safety Report 9134511 (Version 1)
Quarter: 2013Q1

REPORT INFORMATION
  Report Type: Spontaneous
  Country: BR (occurrence: BR)
  Receive Date: 20130304
  Receipt Date: 20130304
  Transmission Date: 20140127
  Serious: Yes (Other)
  Sender: FDA-Public Use
  Company Number: BR-JNJFOC-20130216013

PATIENT
  Age: 57 Year
  Sex: Female
  Weight: 97 kg

DRUGS (5)
  1. TYLEX [Suspect]
     Indication: OROPHARYNGEAL PAIN
     Route: 048
     Dates: start: 20130221, end: 20130222
  2. ATORVASTATIN [Concomitant]
     Indication: HYPERTENSION
     Route: 065
     Dates: start: 1996
  3. LORAZEPAM [Concomitant]
     Indication: DEPRESSION
     Route: 065
     Dates: start: 1996
  4. METFORMIN [Concomitant]
     Indication: DIABETES MELLITUS
     Route: 065
     Dates: start: 1996
  5. LOTAR [Concomitant]
     Indication: HYPERTENSION
     Route: 065
     Dates: start: 1996

REACTIONS (5)
  - Blood pressure decreased [Recovered/Resolved]
  - Tachycardia [Recovered/Resolved]
  - Vomiting [Recovered/Resolved]
  - Dizziness [Recovered/Resolved]
  - Nausea [Recovered/Resolved]
